FAERS Safety Report 7915541-X (Version None)
Quarter: 2011Q4

REPORT INFORMATION
  Report Type: 
  Country: None (occurrence: None)
  Receive Date: 20111115
  Receipt Date: 20110829
  Transmission Date: 20120403
  Serious: Yes (Other)
  Sender: FDA-Public Use
  Company Number: US-BRISTOL-MYERS SQUIBB COMPANY-16012882

PATIENT
  Age: 71 Year
  Sex: Female

DRUGS (1)
  1. YERVOY [Suspect]
     Dosage: NO: OF DOSES:04.

REACTIONS (2)
  - RASH [None]
  - PRURITUS [None]
